FAERS Safety Report 4943594-X (Version None)
Quarter: 2006Q1

REPORT INFORMATION
  Report Type: 
  Country: None (occurrence: None)
  Receive Date: 20060314
  Receipt Date: 20060117
  Transmission Date: 20060701
  Serious: Yes (Life-Threatening, Hospitalization, Disabling, Other)
  Sender: FDA-Public Use
  Company Number: JP-GILEAD-2006-0009134

PATIENT
  Sex: Male

DRUGS (10)
  1. VIREAD [Suspect]
     Indication: HIV INFECTION
     Route: 048
     Dates: start: 20051221, end: 20051230
  2. STOCRIN [Suspect]
     Indication: HIV INFECTION
     Route: 048
     Dates: start: 20051221, end: 20051226
  3. EPIVIR [Concomitant]
     Indication: HIV INFECTION
     Dates: start: 20051221, end: 20051230
  4. COTRIM [Concomitant]
     Dates: start: 20051214, end: 20060106
  5. COTRIM [Concomitant]
     Dates: start: 20051210, end: 20051213
  6. COTRIM [Concomitant]
     Dates: start: 20051116, end: 20051209
  7. DIFLUCAN [Concomitant]
     Dates: start: 20060106
  8. DIFLUCAN [Concomitant]
     Dates: start: 20051231, end: 20060105
  9. DIFLUCAN [Concomitant]
     Dates: start: 20051212, end: 20051230
  10. DENOSINE [Concomitant]
     Dates: start: 20060116, end: 20060122

REACTIONS (5)
  - ANOREXIA [None]
  - APATHY [None]
  - DEHYDRATION [None]
  - DEPRESSED LEVEL OF CONSCIOUSNESS [None]
  - RENAL FAILURE ACUTE [None]
